FAERS Safety Report 21751037 (Version 1)
Quarter: 2022Q4

REPORT INFORMATION
  Report Type: Spontaneous
  Country: JP (occurrence: JP)
  Receive Date: 20221219
  Receipt Date: 20221219
  Transmission Date: 20230113
  Serious: Yes (Other)
  Sender: FDA-Public Use
  Company Number: JP-SAKK-2022SA509238AA

PATIENT
  Age: 84 Year
  Sex: Female

DRUGS (2)
  1. KEVZARA [Suspect]
     Active Substance: SARILUMAB
     Indication: Product used for unknown indication
     Route: 058
  2. KEVZARA [Suspect]
     Active Substance: SARILUMAB
     Route: 058

REACTIONS (5)
  - Interstitial lung disease [Recovered/Resolved]
  - Back pain [Unknown]
  - Gout [Unknown]
  - Pain in extremity [Unknown]
  - Inappropriate schedule of product administration [Unknown]
